FAERS Safety Report 6245625-6 (Version None)
Quarter: 2009Q2

REPORT INFORMATION
  Report Type: 
  Country: None (occurrence: None)
  Receive Date: 20090619
  Receipt Date: 20090522
  Transmission Date: 20091009
  Serious: No
  Sender: FDA-Public Use
  Company Number: ALL1-2009-01442

PATIENT
  Age: 13 Year
  Sex: Female

DRUGS (1)
  1. VYVANSE [Suspect]
     Dosage: MG,ORAL
     Route: 048
     Dates: start: 20090401

REACTIONS (2)
  - CONFUSIONAL STATE [None]
  - OFF LABEL USE [None]
